FAERS Safety Report 5691461-9 (Version None)
Quarter: 2008Q2

REPORT INFORMATION
  Report Type: 
  Country: None (occurrence: None)
  Receive Date: 20080328
  Receipt Date: 20070713
  Transmission Date: 20081010
  Serious: Yes (Hospitalization, Other)
  Sender: FDA-Public Use
  Company Number: 39001

PATIENT
  Age: 53 Year
  Sex: Female
  Weight: 71.2147 kg

DRUGS (1)
  1. ADRIAMYCIN PFS [Suspect]
     Indication: BREAST CANCER
     Dosage: 50MG/M2
     Dates: start: 20070608

REACTIONS (1)
  - EXTRAVASATION [None]
